FAERS Safety Report 6755597-3 (Version None)
Quarter: 2010Q2

REPORT INFORMATION
  Report Type: 
  Country: None (occurrence: None)
  Receive Date: 20100604
  Receipt Date: 20100524
  Transmission Date: 20101027
  Serious: Yes (Other)
  Sender: FDA-Public Use
  Company Number: PHHY2010AU34054

PATIENT
  Age: 69 Year
  Sex: Male

DRUGS (2)
  1. FAMVIR [Suspect]
     Dosage: UNK
     Route: 048
  2. ANTICOAGULANTS [Concomitant]
     Dosage: UNK
     Route: 048

REACTIONS (6)
  - EPISTAXIS [None]
  - HEADACHE [None]
  - NASAL MUCOSAL DISORDER [None]
  - NAUSEA [None]
  - ORAL HERPES [None]
  - PAIN [None]
